FAERS Safety Report 18532232 (Version 1)
Quarter: 2020Q4

REPORT INFORMATION
  Report Type: Spontaneous
  Country: GB (occurrence: GB)
  Receive Date: 20201123
  Receipt Date: 20201123
  Transmission Date: 20210114
  Serious: Yes (Disabling)
  Sender: FDA-Public Use
  Company Number: GB-009507513-2011GBR012115

PATIENT
  Age: 83 Year
  Sex: Female
  Weight: 97 kg

DRUGS (13)
  1. ADCAL (CALCIUM CARBONATE) [Concomitant]
     Active Substance: CALCIUM CARBONATE
     Indication: OSTEOPOROSIS PROPHYLAXIS
     Dosage: 2 DOSAGE FORM, QD, TO PROTECT BONES WH
     Dates: start: 20200710
  2. DORZOLAMIDE HYDROCHLORIDE. [Concomitant]
     Active Substance: DORZOLAMIDE HYDROCHLORIDE
     Dosage: 2 GTT DROPS, QD, TO THE LEFT EYE
     Dates: start: 20161207
  3. ACETAMINOPHEN. [Concomitant]
     Active Substance: ACETAMINOPHEN
     Dosage: TAKE ONE OR TWO TABLETS UP TO FOUR TIMES A DAY
     Dates: start: 20200701
  4. RAMIPRIL. [Concomitant]
     Active Substance: RAMIPRIL
     Dosage: 1 DOSAGE FORM, QD
     Dates: start: 20190128
  5. FOLIC ACID. [Concomitant]
     Active Substance: FOLIC ACID
     Dosage: 1 DOSAGE FORM, QD
     Dates: start: 20200317
  6. FLUTICASONE. [Concomitant]
     Active Substance: FLUTICASONE
     Dosage: 4 DOSAGE FORM, QD, PUFFS
     Dates: start: 20161207
  7. ALBUTEROL. [Concomitant]
     Active Substance: ALBUTEROL
     Dosage: 2 DOSAGE FORM, PRN (AS NECESSARY), 2 PUFFS AS REQUIRED UP TO QDS
     Dates: start: 20161207
  8. VISCOTEARS [Concomitant]
     Active Substance: CARBOMER
     Indication: DRY EYE
     Dosage: PRN (AS NECESSARY)
     Dates: start: 20161207
  9. BRIMONIDINE TARTRATE. [Concomitant]
     Active Substance: BRIMONIDINE TARTRATE
     Dosage: 2 GTT DROPS, QD, TO THE LEFT EYE
     Dates: start: 20161207
  10. LACTULOSE. [Concomitant]
     Active Substance: LACTULOSE
     Dosage: TAKE TWO TO THREE 5ML SPOONFULS TWICE A DAY
     Dates: start: 20200701
  11. ALENDRONATE SODIUM. [Suspect]
     Active Substance: ALENDRONATE SODIUM
     Dosage: 70 MILLIGRAM, QW, WITH PLENTY OF WATER
     Route: 048
     Dates: start: 20200812
  12. PREDNISOLONE. [Concomitant]
     Active Substance: PREDNISOLONE
     Dosage: 9 MILLIGRAM, QD, FOUR TO BE TAKEN ONCE DAILY FOR 6 WEEKS (TOTAL DOSE 9MG ONCE DAILY)
     Dates: start: 20201009
  13. BIMATOPROST. [Concomitant]
     Active Substance: BIMATOPROST
     Dosage: 1 GTT DROPS, QD
     Dates: start: 20161207

REACTIONS (2)
  - Depressed mood [Recovered/Resolved]
  - Suicidal ideation [Unknown]

NARRATIVE: CASE EVENT DATE: 20201103
